FAERS Safety Report 14388793 (Version 2)
Quarter: 2018Q2

REPORT INFORMATION
  Report Type: Spontaneous
  Country: US (occurrence: US)
  Receive Date: 20180115
  Receipt Date: 20180618
  Transmission Date: 20180711
  Serious: Yes (Other)
  Sender: FDA-Public Use
  Company Number: US-SA-2017SA218339

PATIENT
  Age: 58 Year
  Sex: Female
  Weight: 95 kg

DRUGS (11)
  1. EMEND [Concomitant]
     Active Substance: APREPITANT
  2. VITAMIN D [Concomitant]
     Active Substance: CHOLECALCIFEROL
  3. NEULASTA [Concomitant]
     Active Substance: PEGFILGRASTIM
  4. LORTAB [LORATADINE] [Concomitant]
  5. TAXOTERE [Suspect]
     Active Substance: DOCETAXEL
     Indication: BREAST CANCER FEMALE
     Dosage: 160 MG,Q3W
     Route: 051
     Dates: start: 20110223, end: 20110223
  6. NEOSAR [Concomitant]
     Active Substance: CYCLOPHOSPHAMIDE
  7. CYTOXAN [Concomitant]
     Active Substance: CYCLOPHOSPHAMIDE
     Indication: CHEMOTHERAPY
  8. LORAZEPAM. [Concomitant]
     Active Substance: LORAZEPAM
  9. DECADRON [Concomitant]
     Active Substance: DEXAMETHASONE
  10. ALOXI [Concomitant]
     Active Substance: PALONOSETRON HYDROCHLORIDE
  11. TAXOTERE [Suspect]
     Active Substance: DOCETAXEL
     Dosage: 160 MG,Q3W
     Route: 051
     Dates: start: 20110608, end: 20110608

REACTIONS (1)
  - Alopecia [Not Recovered/Not Resolved]

NARRATIVE: CASE EVENT DATE: 20111208
